FAERS Safety Report 4492624-0 (Version None)
Quarter: 2004Q4

REPORT INFORMATION
  Report Type: 
  Country: None (occurrence: None)
  Receive Date: 20041029
  Receipt Date: 20041022
  Transmission Date: 20050328
  Serious: Yes (Hospitalization)
  Sender: FDA-Public Use
  Company Number: 200412934GDS

PATIENT
  Age: 75 Year
  Sex: Female

DRUGS (9)
  1. ASPIRIN [Suspect]
     Dosage: 100 MG, QD, ORAL
     Route: 048
     Dates: end: 20040929
  2. DICLOFENAC [Suspect]
     Indication: PAIN
     Dosage: TOPICAL
     Route: 061
     Dates: start: 20040901, end: 20040929
  3. PAROXETINE [Suspect]
     Dosage: 20 MG, TOTAL DAILY, ORAL
     Route: 048
  4. INSULIN HUMAN [Concomitant]
  5. VERAPAMIL [Concomitant]
  6. TRANDOLAPRIL [Concomitant]
  7. TORSEMIDE [Concomitant]
  8. SIMVASTATIN [Concomitant]
  9. OXAZEPAM [Concomitant]

REACTIONS (3)
  - ANAEMIA [None]
  - GASTRITIS [None]
  - MYOCARDIAL INFARCTION [None]
